FAERS Safety Report 5280215-3 (Version None)
Quarter: 2007Q1

REPORT INFORMATION
  Report Type: 
  Country: None (occurrence: None)
  Receive Date: 20070329
  Receipt Date: 20070321
  Transmission Date: 20070707
  Serious: Yes (Other)
  Sender: FDA-Public Use
  Company Number: BR-ROCHE-488040

PATIENT
  Sex: Male

DRUGS (1)
  1. RIVOTRIL [Suspect]
     Indication: DRUG USE FOR UNKNOWN INDICATION
     Route: 048

REACTIONS (3)
  - FATIGUE [None]
  - ROAD TRAFFIC ACCIDENT [None]
  - SOMNOLENCE [None]
